FAERS Safety Report 9013676 (Version 1)
Quarter: 2013Q1

REPORT INFORMATION
  Report Type: Spontaneous
  Country: FR (occurrence: FR)
  Receive Date: 20130115
  Receipt Date: 20130115
  Transmission Date: 20140127
  Serious: Yes (Hospitalization)
  Sender: FDA-Public Use
  Company Number: FR-009507513-1203USA02707

PATIENT
  Sex: Male

DRUGS (3)
  1. INEGY [Suspect]
     Indication: TYPE 2 DIABETES MELLITUS
     Dosage: 10-20
     Route: 048
     Dates: start: 201106, end: 201108
  2. INEGY [Suspect]
     Dosage: 10-20
     Route: 048
     Dates: start: 201108, end: 20120131
  3. EUCREAS [Suspect]
     Indication: TYPE 2 DIABETES MELLITUS
     Dosage: 50MG/1000
     Route: 048
     Dates: start: 201106, end: 20120131

REACTIONS (1)
  - Pemphigoid [Unknown]
